FAERS Safety Report 8004613-X (Version None)
Quarter: 2011Q4

REPORT INFORMATION
  Report Type: 
  Country: None (occurrence: None)
  Receive Date: 20111219
  Receipt Date: 20111205
  Transmission Date: 20120403
  Serious: Yes (Hospitalization)
  Sender: FDA-Public Use
  Company Number: 1000026208

PATIENT
  Sex: Male

DRUGS (2)
  1. PENICILLIN (BENZYLPENICILLIN) [Suspect]
     Dosage: 12 GRAM (3 GM, 4 IN 1 D), INTRAVENOUS BOLUS
     Route: 040
     Dates: start: 20111105, end: 20111114
  2. ESCITALOPRAM OXALATE [Suspect]
     Indication: DEPRESSION
     Dosage: 10 MG (10 MG, 1 IN 1 D), ORAL
     Route: 048
     Dates: start: 20111109, end: 20111114

REACTIONS (2)
  - NEUTROPENIA [None]
  - LEUKOPENIA [None]
